FAERS Safety Report 11838951 (Version 5)
Quarter: 2017Q2

REPORT INFORMATION
  Report Type: Report from Study
  Country: CA (occurrence: CA)
  Receive Date: 20151216
  Receipt Date: 20170523
  Transmission Date: 20170829
  Serious: Yes (Hospitalization, Other)
  Sender: FDA-Public Use
  Company Number: CA-ROCHE-ITM201505IM016670

PATIENT
  Age: 79 Year
  Sex: Male
  Weight: 79.4 kg

DRUGS (10)
  1. ESBRIET [Suspect]
     Active Substance: PIRFENIDONE
     Indication: IDIOPATHIC PULMONARY FIBROSIS
     Route: 048
     Dates: start: 20140825
  2. COVERSYL [Concomitant]
     Active Substance: PERINDOPRIL
  3. CRESTOR [Concomitant]
     Active Substance: ROSUVASTATIN CALCIUM
  4. AMITRIPTYLINE [Concomitant]
     Active Substance: AMITRIPTYLINE
  5. ASA [Concomitant]
     Active Substance: ASPIRIN
  6. ESBRIET [Suspect]
     Active Substance: PIRFENIDONE
     Route: 048
     Dates: start: 20150901
  7. BISOPROLOL [Concomitant]
     Active Substance: BISOPROLOL
  8. ESBRIET [Suspect]
     Active Substance: PIRFENIDONE
     Route: 048
     Dates: start: 20150908
  9. ESBRIET [Suspect]
     Active Substance: PIRFENIDONE
     Route: 048
     Dates: start: 2016, end: 201705
  10. LYRICA [Concomitant]
     Active Substance: PREGABALIN

REACTIONS (11)
  - Abdominal discomfort [Unknown]
  - Malaise [Unknown]
  - Pulmonary function test decreased [Recovering/Resolving]
  - Asthenia [Unknown]
  - Arteriosclerosis coronary artery [Unknown]
  - Myocardial infarction [Not Recovered/Not Resolved]
  - Oesophageal carcinoma [Not Recovered/Not Resolved]
  - Cholelithiasis [Unknown]
  - Hypokinesia [Unknown]
  - Lymphadenopathy mediastinal [Unknown]
  - Hepatic enzyme increased [Not Recovered/Not Resolved]

NARRATIVE: CASE EVENT DATE: 20140929
